FAERS Safety Report 7902591-2 (Version None)
Quarter: 2011Q4

REPORT INFORMATION
  Report Type: 
  Country: None (occurrence: None)
  Receive Date: 20111108
  Receipt Date: 20111024
  Transmission Date: 20120403
  Serious: Yes (Other)
  Sender: FDA-Public Use
  Company Number: US-WATSON-2011-18352

PATIENT
  Age: 47 Year
  Sex: Female

DRUGS (3)
  1. THALIDOMIDE [Suspect]
     Indication: PEMPHIGUS
     Dosage: 200 MG, DAILY ON SEPTEMBER 2004 THEN  BY FEBRUARY 2005 MAINTAINED AT 50MG/DAY.
     Dates: start: 20040908
  2. PREDNISONE [Suspect]
     Indication: PEMPHIGUS
     Dosage: 60 MG, DAILY, TAPERED FROM SEPTEMBER 2004 TO FEBRUARY 2005 THEN STOPPED
     Dates: start: 20040629, end: 20050225
  3. MYCOPHENOLATE MEFETIL [Suspect]
     Indication: PEMPHIGUS
     Dosage: 1500 MG, BID AND WAS STOPPED AFTER THREE MONTHS
     Dates: start: 20040629, end: 20050225

REACTIONS (5)
  - NEUROPATHY PERIPHERAL [None]
  - DRUG EFFECT DECREASED [None]
  - CUSHINGOID [None]
  - DIABETES MELLITUS [None]
  - DRUG INTERACTION [None]
